FAERS Safety Report 24875073 (Version 1)
Quarter: 2025Q1

REPORT INFORMATION
  Report Type: Spontaneous
  Country: GB (occurrence: GB)
  Receive Date: 20250122
  Receipt Date: 20250122
  Transmission Date: 20250409
  Serious: Yes (Hospitalization, Other)
  Sender: B BRAUN
  Company Number: GB-B.Braun Medical Inc.-2169549

PATIENT
  Sex: Male

DRUGS (5)
  1. ACETAMINOPHEN [Suspect]
     Active Substance: ACETAMINOPHEN
  2. CLOZARIL [Suspect]
     Active Substance: CLOZAPINE
  3. PROMETHAZINE [Suspect]
     Active Substance: PROMETHAZINE HYDROCHLORIDE
  4. LORAZEPAM [Suspect]
     Active Substance: LORAZEPAM
  5. OLANZAPINE [Suspect]
     Active Substance: OLANZAPINE

REACTIONS (4)
  - Schizophrenia [Unknown]
  - Off label use [Unknown]
  - White blood cell count decreased [Unknown]
  - Eosinophil count decreased [Unknown]
